FAERS Safety Report 4897678-5 (Version None)
Quarter: 2006Q1

REPORT INFORMATION
  Report Type: 
  Country: None (occurrence: None)
  Receive Date: 20060130
  Receipt Date: 20060130
  Transmission Date: 20060701
  Serious: No
  Sender: FDA-Public Use
  Company Number: None

PATIENT
  Age: 40 Year
  Sex: Female
  Weight: 57.1532 kg

DRUGS (1)
  1. ZICAM COLD REMEDY ZICAM [Suspect]
     Indication: NASOPHARYNGITIS
     Dosage: 2 SQUIRTS ONCE NASAL
     Route: 045
     Dates: start: 20060121, end: 20060121

REACTIONS (2)
  - AGEUSIA [None]
  - ANOSMIA [None]
